FAERS Safety Report 24906164 (Version 1)
Quarter: 2025Q1

REPORT INFORMATION
  Report Type: Spontaneous
  Country: US (occurrence: US)
  Receive Date: 20250130
  Receipt Date: 20250130
  Transmission Date: 20250408
  Serious: Yes (Other)
  Sender: GLAXOSMITHKLINE
  Company Number: US-GLAXOSMITHKLINE INC-US2025008807

PATIENT

DRUGS (1)
  1. BENLYSTA [Suspect]
     Active Substance: BELIMUMAB
     Indication: Product used for unknown indication
     Dates: start: 202401

REACTIONS (6)
  - Systemic lupus erythematosus [Recovering/Resolving]
  - Breast cancer female [Recovering/Resolving]
  - Rheumatoid arthritis [Recovering/Resolving]
  - Gastric haemorrhage [Recovering/Resolving]
  - Breast cancer stage III [Recovering/Resolving]
  - Metastases to lymph nodes [Recovering/Resolving]
